FAERS Safety Report 6660442-0 (Version None)
Quarter: 2010Q1

REPORT INFORMATION
  Report Type: 
  Country: None (occurrence: None)
  Receive Date: 20100331
  Receipt Date: 20100322
  Transmission Date: 20100710
  Serious: Yes (Other)
  Sender: FDA-Public Use
  Company Number: US-ELI_LILLY_AND_COMPANY-US201003005968

PATIENT
  Sex: Female

DRUGS (2)
  1. BYETTA [Suspect]
     Dosage: 10 UG, UNKNOWN
  2. GLUCOTROL [Concomitant]
     Dosage: UNK, UNKNOWN

REACTIONS (2)
  - BLOOD GLUCOSE DECREASED [None]
  - LIPOSARCOMA [None]
